FAERS Safety Report 5949019-X (Version None)
Quarter: 2008Q4

REPORT INFORMATION
  Report Type: 
  Country: None (occurrence: None)
  Receive Date: 20081111
  Receipt Date: 20081031
  Transmission Date: 20090506
  Serious: Yes (Hospitalization, Other)
  Sender: FDA-Public Use
  Company Number: US-PFIZER INC-2008078774

PATIENT
  Sex: Female
  Weight: 81.6 kg

DRUGS (14)
  1. LYRICA [Suspect]
     Indication: FIBROMYALGIA
     Route: 048
     Dates: start: 20080626, end: 20080731
  2. ALBUTEROL [Concomitant]
  3. ADVAIR DISKUS 100/50 [Concomitant]
  4. XANAX [Concomitant]
  5. EFFEXOR XR [Concomitant]
  6. AMBIEN [Concomitant]
  7. FLEXERIL [Concomitant]
  8. ULTRAM [Concomitant]
  9. TOPAMAX [Concomitant]
  10. IBUPROFEN TABLETS [Concomitant]
  11. REQUIP [Concomitant]
  12. VERAPAMIL [Concomitant]
  13. IBANDRONATE SODIUM [Concomitant]
  14. PROTONIX [Concomitant]

REACTIONS (11)
  - ABNORMAL BEHAVIOUR [None]
  - AGGRESSION [None]
  - ASTHENIA [None]
  - DISORIENTATION [None]
  - DISSOCIATION [None]
  - DYSPNOEA [None]
  - DYSSTASIA [None]
  - FALL [None]
  - GAIT DISTURBANCE [None]
  - INTRACRANIAL ANEURYSM [None]
  - MENTAL STATUS CHANGES [None]
